FAERS Safety Report 25366852 (Version 1)
Quarter: 2025Q2

REPORT INFORMATION
  Report Type: Spontaneous
  Country: US (occurrence: US)
  Receive Date: 20250528
  Receipt Date: 20250528
  Transmission Date: 20250717
  Serious: No
  Sender: ELI LILLY AND COMPANY
  Company Number: US-ELI_LILLY_AND_COMPANY-US202505021835

PATIENT

DRUGS (1)
  1. ZEPBOUND [Suspect]
     Active Substance: TIRZEPATIDE
     Indication: Metabolic dysfunction-associated steatohepatitis
     Route: 065

REACTIONS (3)
  - Inflammation [Unknown]
  - Weight decreased [Unknown]
  - Off label use [Unknown]
